FAERS Safety Report 6640728-6 (Version None)
Quarter: 2010Q1

REPORT INFORMATION
  Report Type: 
  Country: None (occurrence: None)
  Receive Date: 20100318
  Receipt Date: 20100218
  Transmission Date: 20100710
  Serious: Yes (Hospitalization)
  Sender: FDA-Public Use
  Company Number: US-EISAI INC.-E2080-00073-CLI-US

PATIENT
  Sex: Male
  Weight: 86.4 kg

DRUGS (10)
  1. E2080 [Suspect]
     Indication: EPILEPSY
     Route: 048
     Dates: start: 20080627, end: 20080824
  2. E2080 [Suspect]
     Route: 048
     Dates: start: 20080825, end: 20080901
  3. E2080 [Suspect]
     Route: 048
     Dates: start: 20080902
  4. OXCARBAZEPINE [Concomitant]
     Route: 048
     Dates: start: 20060526
  5. TEGRETOL-XR [Concomitant]
     Route: 048
     Dates: start: 20070329
  6. LIPITOR [Concomitant]
     Route: 048
     Dates: start: 20010101
  7. FOSAMAX [Concomitant]
     Indication: OSTEOPOROSIS
     Dosage: PER WEEK
     Route: 048
     Dates: start: 20061001
  8. CALCIUM [Concomitant]
     Route: 048
     Dates: start: 20070426
  9. VITAMIN D [Concomitant]
     Route: 048
     Dates: start: 20070426
  10. GLUCOSAMINE [Concomitant]
     Route: 048
     Dates: start: 20070201

REACTIONS (2)
  - ASTHENIA [None]
  - CONVULSION [None]
